FAERS Safety Report 6207946-2 (Version None)
Quarter: 2009Q2

REPORT INFORMATION
  Report Type: 
  Country: None (occurrence: None)
  Receive Date: 20090529
  Receipt Date: 20080819
  Transmission Date: 20091009
  Serious: Yes (Life-Threatening, Disabling)
  Sender: FDA-Public Use
  Company Number: A0743547A

PATIENT
  Age: 44 Year
  Sex: Female

DRUGS (2)
  1. VENTOLIN [Suspect]
     Indication: ASTHMA
     Dosage: 2PUFF FOUR TIMES PER DAY
     Route: 055
     Dates: start: 20080722
  2. ALBUTEROL [Concomitant]
     Route: 048

REACTIONS (1)
  - DRUG INEFFECTIVE [None]
